FAERS Safety Report 10010364 (Version 3)
Quarter: 2014Q2

REPORT INFORMATION
  Report Type: Report from Study
  Country: US (occurrence: US)
  Receive Date: 20140314
  Receipt Date: 20140516
  Transmission Date: 20141212
  Serious: Yes (Death)
  Sender: FDA-Public Use
  Company Number: US-BIOGENIDEC-2014BI021458

PATIENT
  Sex: Female

DRUGS (10)
  1. TYSABRI [Suspect]
     Indication: MULTIPLE SCLEROSIS
     Route: 042
     Dates: start: 20110120, end: 20121228
  2. TYLENOL [Concomitant]
     Route: 048
  3. CATAPRES [Concomitant]
     Route: 048
  4. VICODIN [Concomitant]
     Route: 048
  5. KEPPRA [Concomitant]
     Route: 048
  6. LISINOPRIL [Concomitant]
     Route: 048
  7. LONITEN [Concomitant]
     Route: 048
  8. NIFEDIAC CC [Concomitant]
     Route: 048
  9. DILANTIN [Concomitant]
     Route: 048
  10. DESYREL [Concomitant]
     Route: 048

REACTIONS (3)
  - Death [Fatal]
  - Cholecystitis [Unknown]
  - Haemorrhage [Unknown]
